FAERS Safety Report 11196809 (Version 1)
Quarter: 2015Q2

REPORT INFORMATION
  Report Type: Spontaneous
  Country: CA (occurrence: CA)
  Receive Date: 20150617
  Receipt Date: 20150617
  Transmission Date: 20150821
  Serious: Yes (Other)
  Sender: FDA-Public Use
  Company Number: CA-SA-2015SA051604

PATIENT
  Age: 76 Year
  Sex: Female

DRUGS (25)
  1. RITUXAN [Concomitant]
     Active Substance: RITUXIMAB
     Indication: RHEUMATOID ARTHRITIS
  2. LASIX [Concomitant]
     Active Substance: FUROSEMIDE
  3. REMICADE [Suspect]
     Active Substance: INFLIXIMAB
     Dosage: QMO
     Route: 065
     Dates: start: 200407, end: 2005
  4. ABATACEPT [Concomitant]
     Active Substance: ABATACEPT
     Indication: RHEUMATOID ARTHRITIS
  5. BENADRYL [Concomitant]
     Active Substance: DIPHENHYDRAMINE HYDROCHLORIDE
  6. ATIVAN [Concomitant]
     Active Substance: LORAZEPAM
  7. LOPERAMIDE [Concomitant]
     Active Substance: LOPERAMIDE
  8. XELJANZ [Suspect]
     Active Substance: TOFACITINIB CITRATE
     Route: 065
  9. HUMIRA [Suspect]
     Active Substance: ADALIMUMAB
     Dosage: 2 TIMES/WEEK
     Route: 065
     Dates: start: 2005, end: 2006
  10. OMNARIS [Concomitant]
     Active Substance: CICLESONIDE
  11. DILAUDID [Concomitant]
     Active Substance: HYDROMORPHONE HYDROCHLORIDE
     Indication: PAIN
  12. MYOCRISIN (SODIUM AUROTHIOMALATE) [Suspect]
     Active Substance: GOLD SODIUM THIOMALATE
     Route: 065
  13. ENBREL [Suspect]
     Active Substance: ETANERCEPT
     Indication: RHEUMATOID ARTHRITIS
     Dosage: 2 TIMES /WEEK
     Route: 065
     Dates: start: 200205, end: 200409
  14. VAGIFEM [Concomitant]
     Active Substance: ESTRADIOL
  15. PLAQUENIL [Suspect]
     Active Substance: HYDROXYCHLOROQUINE SULFATE
     Route: 065
  16. SYNTHROID [Concomitant]
     Active Substance: LEVOTHYROXINE SODIUM
  17. ENABLEX [Concomitant]
     Active Substance: DARIFENACIN\DARIFENACIN HYDROBROMIDE
  18. CORTISONE [Concomitant]
     Active Substance: CORTISONE\HYDROCORTISONE
     Dosage: INTERMITTENT INTRA-AURICULAR AND INTRAMUSCULAR TO KEEP HER COMFORTABLE
  19. KINERET [Concomitant]
     Active Substance: ANAKINRA
  20. NORFLEX [Concomitant]
     Active Substance: ORPHENADRINE CITRATE
  21. PANTOLOC [Concomitant]
     Active Substance: PANTOPRAZOLE SODIUM
  22. ACTEMRA [Suspect]
     Active Substance: TOCILIZUMAB
     Route: 065
     Dates: end: 20150203
  23. ARAVA [Suspect]
     Active Substance: LEFLUNOMIDE
     Route: 065
     Dates: start: 200408
  24. ORENCIA [Suspect]
     Active Substance: ABATACEPT
     Route: 065
  25. METHOTREXATE [Suspect]
     Active Substance: METHOTREXATE
     Dosage: 25 MG QWK
     Route: 065
     Dates: start: 1995, end: 200411

REACTIONS (16)
  - Arthritis [Unknown]
  - Peripheral swelling [Unknown]
  - Pneumonia viral [Unknown]
  - Drug effect incomplete [Unknown]
  - Arthralgia [Unknown]
  - Liver function test abnormal [Unknown]
  - Leukopenia [Unknown]
  - Blood cholesterol increased [Unknown]
  - Synovitis [Unknown]
  - Infection [Unknown]
  - Herpes zoster [Unknown]
  - Drug ineffective [Unknown]
  - Anaemia [Unknown]
  - Joint swelling [Unknown]
  - Fibromyalgia [Unknown]
  - Soft tissue disorder [Unknown]

NARRATIVE: CASE EVENT DATE: 2015
